FAERS Safety Report 6177902-1 (Version None)
Quarter: 2009Q2

REPORT INFORMATION
  Report Type: 
  Country: None (occurrence: None)
  Receive Date: 20090504
  Receipt Date: 20090420
  Transmission Date: 20091009
  Serious: No
  Sender: FDA-Public Use
  Company Number: US-BAYER-200919039NA

PATIENT
  Sex: Male
  Weight: 91 kg

DRUGS (4)
  1. MAGNEVIST [Suspect]
     Indication: NUCLEAR MAGNETIC RESONANCE IMAGING BRAIN
     Dosage: TOTAL DAILY DOSE: 20 ML  UNIT DOSE: 20 ML
     Route: 042
     Dates: start: 20090416, end: 20090416
  2. MELOXICAM [Concomitant]
  3. XALATAN [Concomitant]
     Route: 047
  4. TIMOLOL MALEATE [Concomitant]
     Route: 047

REACTIONS (2)
  - PRURITUS [None]
  - URTICARIA [None]
